FAERS Safety Report 8047566-0 (Version None)
Quarter: 2012Q1

REPORT INFORMATION
  Report Type: 
  Country: None (occurrence: None)
  Receive Date: 20120116
  Receipt Date: 20120105
  Transmission Date: 20120608
  Serious: Yes (Hospitalization)
  Sender: FDA-Public Use
  Company Number: US-GLAXOSMITHKLINE-A0937761A

PATIENT
  Age: 52 Year
  Sex: Male

DRUGS (8)
  1. AMARYL [Concomitant]
  2. ALTACE [Concomitant]
  3. INSULIN [Concomitant]
  4. GLUCOPHAGE [Concomitant]
  5. AVANDIA [Suspect]
     Indication: DIABETES MELLITUS
     Dosage: 2MG PER DAY
     Route: 048
     Dates: start: 20051130
  6. ELAVIL [Concomitant]
  7. LIPITOR [Concomitant]
  8. LOPRESSOR [Concomitant]

REACTIONS (1)
  - MYOCARDIAL INFARCTION [None]
